FAERS Safety Report 9824734 (Version 3)
Quarter: 2014Q1

REPORT INFORMATION
  Report Type: Spontaneous
  Country: US (occurrence: US)
  Receive Date: 20140117
  Receipt Date: 20140306
  Transmission Date: 20141002
  Serious: Yes (Hospitalization)
  Sender: FDA-Public Use
  Company Number: US-ROCHE-1327686

PATIENT
  Age: 81 Year
  Sex: Male

DRUGS (12)
  1. XELODA [Suspect]
     Indication: COLON CANCER
     Dosage: 14 DAYS ON AND 7 DAYS OFF. 1500MG IN AM, 1000MG IN PM
     Route: 048
     Dates: start: 20131214
  2. XELODA [Suspect]
     Indication: LYMPHADENOPATHY
  3. AMLODIPINE [Concomitant]
  4. FUROSEMIDE [Concomitant]
  5. NITROFURANTOIN [Concomitant]
  6. LOPRESSOR [Concomitant]
  7. CRANBERRY [Concomitant]
  8. OMEPRAZOLE [Concomitant]
  9. VITAMIN B6 [Concomitant]
  10. TYLENOL [Concomitant]
  11. VITAMIN B6 [Concomitant]
  12. VITAMIN B12 [Concomitant]

REACTIONS (5)
  - Blood urine present [Unknown]
  - Flushing [Unknown]
  - Diarrhoea [Not Recovered/Not Resolved]
  - Skin fissures [Recovered/Resolved]
  - Erythema [Recovered/Resolved]
